FAERS Safety Report 6780900-8 (Version None)
Quarter: 2010Q2

REPORT INFORMATION
  Report Type: 
  Country: None (occurrence: None)
  Receive Date: 20100621
  Receipt Date: 20100611
  Transmission Date: 20101027
  Serious: Yes (Other)
  Sender: FDA-Public Use
  Company Number: DE-TYCO HEALTHCARE/MALLINCKRODT-T201001445

PATIENT
  Age: 24 Year
  Sex: Male

DRUGS (5)
  1. SODIUM IODIDE I 131 [Suspect]
     Indication: THYROID CANCER
     Dosage: 7 GBQ
  2. SODIUM IODIDE I 131 [Suspect]
     Dosage: 7 GBQ
  3. SODIUM IODIDE I 131 [Suspect]
     Dosage: 7 GBQ
  4. SODIUM IODIDE I 131 [Suspect]
     Dosage: 7 GBQ
  5. SODIUM IODIDE I 131 [Suspect]
     Dosage: 14.0 GBQ

REACTIONS (2)
  - PLATELET COUNT DECREASED [None]
  - WHITE BLOOD CELL COUNT DECREASED [None]
